FAERS Safety Report 6168252-8 (Version None)
Quarter: 2009Q2

REPORT INFORMATION
  Report Type: 
  Country: None (occurrence: None)
  Receive Date: 20090427
  Receipt Date: 20090421
  Transmission Date: 20091009
  Serious: No
  Sender: FDA-Public Use
  Company Number: US-B.I. PHARMACEUTICALS,INC./RIDGEFIELD-2009-BP-03326BP

PATIENT
  Sex: Male

DRUGS (1)
  1. MIRAPEX [Suspect]
     Indication: PARKINSON'S DISEASE
     Dates: start: 20040701, end: 20061201

REACTIONS (6)
  - DEPRESSION [None]
  - EMOTIONAL DISTRESS [None]
  - OBSESSIVE-COMPULSIVE DISORDER [None]
  - PATHOLOGICAL GAMBLING [None]
  - PERSONALITY CHANGE [None]
  - SOMNOLENCE [None]
